FAERS Safety Report 9094149 (Version 1)
Quarter: 2013Q1

REPORT INFORMATION
  Report Type: Spontaneous
  Country: US (occurrence: None)
  Receive Date: 20130122
  Receipt Date: 20130122
  Transmission Date: 20140127
  Serious: Yes (Hospitalization)
  Sender: FDA-Public Use
  Company Number: DSA_61891_2013

PATIENT
  Sex: Male

DRUGS (1)
  1. XENAZINE 12.5 MG (NOT SPECIFIED) [Suspect]
     Indication: HUNTINGTON^S DISEASE
     Dosage: (3 TIMES A DAY (25 MG, 12.5 MG, 25 MG) ORAL )
     Route: 048
     Dates: start: 20100819, end: 20130111

REACTIONS (2)
  - Influenza [None]
  - Pneumonia [None]
